FAERS Safety Report 17755480 (Version 1)
Quarter: 2020Q2

REPORT INFORMATION
  Report Type: Spontaneous
  Country: US (occurrence: US)
  Receive Date: 20200506
  Receipt Date: 20200506
  Transmission Date: 20200714
  Serious: No
  Sender: FDA-Public Use
  Company Number: None

PATIENT
  Age: 22 Year
  Sex: Female
  Weight: 72.57 kg

DRUGS (1)
  1. DEPO-PROVERA [Suspect]
     Active Substance: MEDROXYPROGESTERONE ACETATE

REACTIONS (8)
  - Depressed mood [None]
  - Dizziness [None]
  - Back pain [None]
  - Breast tenderness [None]
  - Nausea [None]
  - Vomiting [None]
  - Suicidal ideation [None]
  - Dysmenorrhoea [None]

NARRATIVE: CASE EVENT DATE: 20191113
